FAERS Safety Report 13346516 (Version 2)
Quarter: 2017Q1

REPORT INFORMATION
  Report Type: Spontaneous
  Country: US (occurrence: US)
  Receive Date: 20170317
  Receipt Date: 20170330
  Transmission Date: 20170428
  Serious: Yes (Other)
  Sender: FDA-Public Use
  Company Number: US-ASTRAZENECA-2017SE26649

PATIENT
  Age: 45 Year
  Sex: Male

DRUGS (1)
  1. SEROQUEL [Suspect]
     Active Substance: QUETIAPINE FUMARATE
     Dosage: 60 TABLETS
     Route: 048

REACTIONS (5)
  - Overdose [Unknown]
  - Bundle branch block left [Recovered/Resolved]
  - Blood pressure decreased [Recovering/Resolving]
  - Left ventricular dilatation [Recovered/Resolved]
  - Stupor [Unknown]
